FAERS Safety Report 12587340 (Version 1)
Quarter: 2016Q3

REPORT INFORMATION
  Report Type: Spontaneous
  Country: HR (occurrence: HR)
  Receive Date: 20160725
  Receipt Date: 20160725
  Transmission Date: 20161109
  Serious: Yes (Other)
  Sender: FDA-Public Use
  Company Number: HR-TEVA-677394ACC

PATIENT
  Age: 40 Year
  Sex: Male

DRUGS (7)
  1. DULOXETINE. [Suspect]
     Active Substance: DULOXETINE
     Route: 048
     Dates: start: 20160111, end: 20160111
  2. SEROQUEL XR [Suspect]
     Active Substance: QUETIAPINE FUMARATE
     Route: 048
     Dates: start: 20160111, end: 20160111
  3. MODITEN [Suspect]
     Active Substance: FLUPHENAZINE HYDROCHLORIDE
     Route: 048
     Dates: start: 20160111, end: 20160111
  4. LEPONEX [Suspect]
     Active Substance: CLOZAPINE
     Route: 048
     Dates: start: 20160111, end: 20160111
  5. TEGRETOL [Suspect]
     Active Substance: CARBAMAZEPINE
     Route: 048
     Dates: start: 20160111, end: 20160111
  6. SEROXAT [Suspect]
     Active Substance: PAROXETINE HYDROCHLORIDE
     Route: 048
     Dates: start: 20160111, end: 20160111
  7. APAURIN [Suspect]
     Active Substance: DIAZEPAM
     Route: 048
     Dates: start: 20160111, end: 20160111

REACTIONS (3)
  - Suicide attempt [Unknown]
  - Loss of consciousness [Unknown]
  - Respiratory failure [Unknown]

NARRATIVE: CASE EVENT DATE: 20160111
